FAERS Safety Report 11336739 (Version 1)
Quarter: 2015Q3

REPORT INFORMATION
  Report Type: Spontaneous
  Country: DK (occurrence: DK)
  Receive Date: 20150804
  Receipt Date: 20150804
  Transmission Date: 20151125
  Serious: Yes (Other)
  Sender: FDA-Public Use
  Company Number: DK-TEVA-581601ISR

PATIENT
  Age: 48 Year
  Sex: Male
  Weight: 126 kg

DRUGS (20)
  1. ATORVASTATIN ^ACTAVIS^ [Concomitant]
     Indication: HYPERCHOLESTEROLAEMIA
     Dates: start: 20140610
  2. HJERTEMAGNYL [Concomitant]
     Active Substance: ASPIRIN\MAGNESIUM OXIDE
     Indication: THROMBOSIS PROPHYLAXIS
     Dosage: UNK
     Dates: start: 20130124
  3. UNIKALK FORTE [Concomitant]
     Dates: start: 20140114
  4. ENALAPRIL HYDROCHLORTHIAZID ^TEVA^ [Concomitant]
     Indication: HYPERTENSION
     Dosage: 1 DOSAGE FORMS DAILY;
     Dates: start: 20130124, end: 20141113
  5. LOSARTANKALIUM [Concomitant]
     Active Substance: LOSARTAN
     Indication: HYPERTENSION
     Dosage: 100 MILLIGRAM DAILY;
     Dates: start: 20130124, end: 20140923
  6. GABAPENTIN. [Suspect]
     Active Substance: GABAPENTIN
     Dosage: 300 MILLIGRAM DAILY; 300 MG, 1X/DAY
     Dates: start: 20150115, end: 20150121
  7. EMPERAL [Concomitant]
     Active Substance: METOCLOPRAMIDE HYDROCHLORIDE
     Indication: NAUSEA
     Dosage: UNK, AS NEEDED
     Dates: start: 20130327, end: 20141113
  8. METFORMIN ^ACTAVIS^ [Concomitant]
     Indication: TYPE 2 DIABETES MELLITUS
     Dosage: 2000 MILLIGRAM DAILY;
     Dates: start: 20130207
  9. GABAPENTIN. [Suspect]
     Active Substance: GABAPENTIN
     Dates: start: 20140510, end: 20141121
  10. PAMOL [Concomitant]
     Active Substance: ACETAMINOPHEN
     Indication: PAIN
     Dosage: 1500 MILLIGRAM DAILY; 1500 MG, DAILY
     Dates: start: 20130124, end: 20141114
  11. VICTOZA [Concomitant]
     Active Substance: LIRAGLUTIDE
     Indication: TYPE 2 DIABETES MELLITUS
     Dosage: .6 MILLIGRAM DAILY; 0.6 MG, DAILY
     Dates: start: 20140428, end: 20140923
  12. MEDILAX [Concomitant]
     Indication: CONSTIPATION
     Dates: start: 20131114
  13. METHADON ^ALTERNOVA^ [Concomitant]
     Indication: PAIN
     Dosage: 15 MILLIGRAM DAILY;
     Dates: start: 20140610, end: 20140923
  14. PREDNISOLON [Concomitant]
     Active Substance: PREDNISOLONE
     Indication: ADRENOCORTICAL STEROID THERAPY
     Dosage: 5 MILLIGRAM DAILY; 5 MG, DAILY
     Dates: start: 20140124, end: 20140810
  15. GABAPENTIN. [Suspect]
     Active Substance: GABAPENTIN
     Indication: PAIN
     Dosage: 600 MILLIGRAM DAILY; 600 MG, 1X/DAY
     Dates: start: 20140610, end: 20141121
  16. GABAPENTIN. [Suspect]
     Active Substance: GABAPENTIN
     Dosage: 1200 MILLIGRAM DAILY; 1200 MG, 1X/DAY
     Dates: start: 20150122, end: 20150208
  17. GABAPENTIN. [Suspect]
     Active Substance: GABAPENTIN
     Dosage: 2700 MILLIGRAM DAILY; 2700 MG, 1X/DAY
     Dates: start: 20150209, end: 20150224
  18. BURANA [Concomitant]
     Active Substance: IBUPROFEN
     Indication: PAIN
     Dosage: 1800 MILLIGRAM DAILY; 1800 MG, DAILY
     Dates: start: 20130124, end: 20141113
  19. GABAPENTIN. [Suspect]
     Active Substance: GABAPENTIN
     Indication: PAIN
     Dosage: 1800 MG, UNK
     Dates: start: 20150225
  20. ARAVA [Suspect]
     Active Substance: LEFLUNOMIDE
     Indication: POLYMYALGIA RHEUMATICA
     Dosage: 20 MILLIGRAM DAILY; STYRKE: 20 MG
     Route: 048
     Dates: start: 20130823, end: 20141201

REACTIONS (4)
  - Vomiting [Recovered/Resolved]
  - Renal impairment [Recovered/Resolved]
  - Glomerular filtration rate decreased [Recovered/Resolved]
  - Blood creatinine increased [Recovered/Resolved]

NARRATIVE: CASE EVENT DATE: 201407
